FAERS Safety Report 6558879-3 (Version None)
Quarter: 2010Q1

REPORT INFORMATION
  Report Type: 
  Country: None (occurrence: None)
  Receive Date: 20100129
  Receipt Date: 20100121
  Transmission Date: 20100710
  Serious: Yes (Disabling, Other)
  Sender: FDA-Public Use
  Company Number: GB-ABBOTT-09P-167-0613491-00

PATIENT
  Sex: Male

DRUGS (2)
  1. HUMIRA [Suspect]
     Indication: PSORIATIC ARTHROPATHY
     Route: 058
     Dates: start: 20090724, end: 20091120
  2. LEFLUNOMIDE [Concomitant]
     Indication: PSORIATIC ARTHROPATHY
     Route: 048
     Dates: start: 20080616, end: 20091120

REACTIONS (5)
  - DEAFNESS NEUROSENSORY [None]
  - DEAFNESS UNILATERAL [None]
  - INFLUENZA LIKE ILLNESS [None]
  - TINNITUS [None]
  - VERTIGO [None]
